FAERS Safety Report 10191163 (Version 1)
Quarter: 2014Q2

REPORT INFORMATION
  Report Type: Spontaneous
  Country: BR (occurrence: None)
  Receive Date: 20140521
  Receipt Date: 20140521
  Transmission Date: 20141212
  Serious: Yes (Death)
  Sender: FDA-Public Use
  Company Number: FK201401811

PATIENT
  Age: 35 Year
  Sex: Male

DRUGS (13)
  1. VANCOMYCIN (VANCOMYCIN) [Suspect]
     Indication: SKIN INFECTION
     Route: 042
     Dates: start: 201206
  2. CEFEPIME (CEFEPIME) [Concomitant]
  3. GEMCITABINE (GEMCITABINE) [Concomitant]
  4. VINORELBINE (VINORELBINE) [Concomitant]
  5. DEXAMETHASONE (DEXAMETHASONE) [Concomitant]
  6. PIPERACILLIN/TAZOBACTAM (PIP/TAZO) [Concomitant]
  7. TEICOPLANIN (TEICOPLANIN) [Concomitant]
  8. DAPTOMYCIN (DAPTOMYCIN) [Concomitant]
  9. LEVOFLOXACIN (LEVOFLOXACIN) [Concomitant]
  10. POLYMIXIN B SULFATE (POLYMYXIN B SULFATE) [Concomitant]
  11. MEROPENEM (MEROPENEM) [Concomitant]
  12. LINEZOLID (LINEZOLID) [Concomitant]
  13. AMPHOTERICIN B (AMPHOTERICIN B) [Concomitant]

REACTIONS (11)
  - Multi-organ failure [None]
  - Staphylococcal sepsis [None]
  - Pathogen resistance [None]
  - Candida test positive [None]
  - Stenotrophomonas test positive [None]
  - Blood culture positive [None]
  - Klebsiella test positive [None]
  - Acinetobacter test positive [None]
  - Oral disorder [None]
  - Enterococcus test positive [None]
  - Respiratory depression [None]
